FAERS Safety Report 5694025-6 (Version None)
Quarter: 2008Q2

REPORT INFORMATION
  Report Type: 
  Country: None (occurrence: None)
  Receive Date: 20080401
  Receipt Date: 20080317
  Transmission Date: 20081010
  Serious: Yes (Other)
  Sender: FDA-Public Use
  Company Number: 2008007097

PATIENT
  Sex: Male

DRUGS (1)
  1. BENGAY ULTRA STRENGTH (MENTHOL, CAMPHOR, METHYL SALICYLATE) [Suspect]
     Dosage: TOPICAL
     Route: 061
     Dates: start: 20080317

REACTIONS (2)
  - GENITAL BURNING SENSATION [None]
  - SKIN LACERATION [None]
